FAERS Safety Report 19788540 (Version 1)
Quarter: 2021Q3

REPORT INFORMATION
  Report Type: Spontaneous
  Country: US (occurrence: US)
  Receive Date: 20210903
  Receipt Date: 20210903
  Transmission Date: 20211014
  Serious: Yes (Death, Other)
  Sender: FDA-Public Use
  Company Number: US-BAXTER-2021BAX027113

PATIENT
  Age: 44 Year
  Sex: Male

DRUGS (11)
  1. IFOSFAMIDE FOR INJECTION [Suspect]
     Active Substance: IFOSFAMIDE
     Dosage: REDUCED DOSE
     Route: 065
  2. DEXAMETHASONE. [Suspect]
     Active Substance: DEXAMETHASONE
     Dosage: RECEIVED 4 MORE CYCLES OF M?SMILE WITH 25% DOSE REDUCTION
     Route: 065
  3. METHOTREXATE. [Suspect]
     Active Substance: METHOTREXATE
     Indication: ANGIOCENTRIC LYMPHOMA
     Dosage: 2 G/ M2 GIVEN ON DAY 1 FOR 1 CYCLE
     Route: 065
     Dates: start: 20200119, end: 20200216
  4. PEGASPARGASE [Suspect]
     Active Substance: PEGASPARGASE
     Dosage: RECEIVED 4 MORE CYCLES OF M?SMILE WITH 25% DOSE REDUCTION
     Route: 065
  5. ETOPOSIDE. [Suspect]
     Active Substance: ETOPOSIDE
     Indication: ANGIOCENTRIC LYMPHOMA
     Dosage: 100 MG/M2, ON DAYS 2 TO 4  FOR 1 CYCLE
     Route: 065
     Dates: start: 20200120, end: 20200219
  6. METHOTREXATE. [Suspect]
     Active Substance: METHOTREXATE
     Dosage: 50 % DOSE REDUCTION
     Route: 065
  7. ETOPOSIDE. [Suspect]
     Active Substance: ETOPOSIDE
     Dosage: RECEIVED 4 MORE CYCLES OF M?SMILE WITH 25% DOSE REDUCTION
     Route: 065
  8. IFOSFAMIDE FOR INJECTION [Suspect]
     Active Substance: IFOSFAMIDE
     Indication: ANGIOCENTRIC LYMPHOMA
     Dosage: 1500 MG/M2 ON DAYS 2 TO 4  FOR1 CYCLE
     Route: 065
     Dates: start: 20200120, end: 20200219
  9. PEGASPARGASE [Suspect]
     Active Substance: PEGASPARGASE
     Indication: ANGIOCENTRIC LYMPHOMA
     Dosage: 2000 U/M2 GIVEN ON DAY 8  (26 JAN 2020) OF A 28?DAY CYCLE
     Route: 065
     Dates: start: 20200126, end: 2020
  10. DEXAMETHASONE. [Suspect]
     Active Substance: DEXAMETHASONE
     Indication: ANGIOCENTRIC LYMPHOMA
     Dosage: 40 MG/D GIVEN ON DAYS 2 TO 4 FOR 1 CYCLE
     Route: 065
     Dates: start: 20200120, end: 20200219
  11. METHOTREXATE. [Suspect]
     Active Substance: METHOTREXATE
     Indication: PROPHYLAXIS
     Dosage: 11, 14, 19, AND 21 FEB 2020
     Route: 065
     Dates: start: 20200211, end: 20200221

REACTIONS (2)
  - Renal injury [Unknown]
  - Cytopenia [Unknown]

NARRATIVE: CASE EVENT DATE: 2020
